FAERS Safety Report 11074858 (Version 1)
Quarter: 2015Q2

REPORT INFORMATION
  Report Type: Spontaneous
  Country: PR (occurrence: PR)
  Receive Date: 20150429
  Receipt Date: 20150429
  Transmission Date: 20150821
  Serious: Yes (Other)
  Sender: FDA-Public Use
  Company Number: PR-CIPLA LTD.-2015PR03349

PATIENT

DRUGS (8)
  1. SOFOSBUVIR [Suspect]
     Active Substance: SOFOSBUVIR
     Indication: CHRONIC HEPATITIS C
     Dosage: 400 MG, QD IN THE FED STATE ONCE DAILY (MORNING) FOR 7 DAYS
     Route: 048
  2. RITONAVIR. [Suspect]
     Active Substance: RITONAVIR
     Indication: HIV INFECTION
  3. TENOFOVIR/EMTRICITABINE [Suspect]
     Active Substance: EMTRICITABINE\TENOFOVIR
     Indication: HIV INFECTION
  4. ATAZANAVIR [Suspect]
     Active Substance: ATAZANAVIR
     Indication: HIV INFECTION
  5. SOFOSBUVIR [Suspect]
     Active Substance: SOFOSBUVIR
     Indication: HIV INFECTION
  6. TENOFOVIR/EMTRICITABINE [Suspect]
     Active Substance: EMTRICITABINE\TENOFOVIR
     Indication: CHRONIC HEPATITIS C
     Dosage: EMTRICITABINE 200 MG/TENOFOVIR DISOPROXIL FUMARATE 300 MG IN THE FED STATE ONCE DAILY (MORNING)
     Route: 065
  7. ATAZANAVIR [Suspect]
     Active Substance: ATAZANAVIR
     Indication: CHRONIC HEPATITIS C
     Dosage: 400 MG, QD IN THE FED STATE ONCE DAILY (MORNING)
     Route: 065
  8. RITONAVIR. [Suspect]
     Active Substance: RITONAVIR
     Indication: CHRONIC HEPATITIS C
     Dosage: 100 MG, QD IN THE FED STATE ONCE DAILY (MORNING)
     Route: 065

REACTIONS (2)
  - Hepatitis C [Unknown]
  - Treatment failure [Unknown]
